FAERS Safety Report 6044002-0 (Version None)
Quarter: 2009Q1

REPORT INFORMATION
  Report Type: 
  Country: None (occurrence: None)
  Receive Date: 20090120
  Receipt Date: 20090108
  Transmission Date: 20090719
  Serious: Yes (Hospitalization, Other)
  Sender: FDA-Public Use
  Company Number: US-PFIZER INC-2008057564

PATIENT
  Sex: Male

DRUGS (2)
  1. VIAGRA [Suspect]
     Indication: ERECTILE DYSFUNCTION
     Dosage: 100 MG, UNK
     Route: 048
     Dates: start: 20020101, end: 20050201
  2. CIALIS [Concomitant]
     Dosage: 20 MG, UNK
     Dates: start: 20040101, end: 20050101

REACTIONS (3)
  - BLINDNESS [None]
  - OPTIC ISCHAEMIC NEUROPATHY [None]
  - OPTIC NEURITIS [None]
